FAERS Safety Report 7506294-8 (Version None)
Quarter: 2011Q2

REPORT INFORMATION
  Report Type: 
  Country: None (occurrence: None)
  Receive Date: 20110526
  Receipt Date: 20110512
  Transmission Date: 20111010
  Serious: Yes (Other)
  Sender: FDA-Public Use
  Company Number: IN-KINGPHARMUSA00001-K201100615

PATIENT
  Age: 71 Year
  Sex: Female

DRUGS (4)
  1. LEVOTHYROXINE SODIUM [Concomitant]
     Indication: HYPOTHYROIDISM
     Dosage: 150 MCG, UNK
     Route: 048
     Dates: start: 20000126
  2. ORLISTAT [Concomitant]
     Indication: WEIGHT LOSS DIET
     Dosage: 120 MG, UNK
     Route: 048
     Dates: start: 20110107
  3. AMLODIPINE [Concomitant]
     Indication: HYPERTENSION
     Dosage: 5 MG, UNK
     Route: 048
     Dates: start: 20110303
  4. ALTACE [Suspect]
     Indication: HYPERTENSION
     Dosage: 2.5 MG, QD
     Route: 048
     Dates: start: 20110413, end: 20110420

REACTIONS (3)
  - EYE SWELLING [None]
  - LIP SWELLING [None]
  - OROPHARYNGEAL BLISTERING [None]
